FAERS Safety Report 11594778 (Version 1)
Quarter: 2015Q4

REPORT INFORMATION
  Report Type: Report from Study
  Country: AU (occurrence: AU)
  Receive Date: 20151005
  Receipt Date: 20151005
  Transmission Date: 20160304
  Serious: Yes (Other)
  Sender: FDA-Public Use
  Company Number: AU-009507513-1510AUS001052

PATIENT

DRUGS (2)
  1. INTERFERON ALFA-2B [Suspect]
     Active Substance: INTERFERON ALFA-2B
     Indication: OSTEOSARCOMA
     Dosage: FROM WEEK 30 TO 104: 0.5 MICROGRAM PER KILOGRAM, QW. MAXIMUN 50 MICROGRAMS FOR 4 WEEKS
     Route: 058
  2. INTERFERON ALFA-2B [Suspect]
     Active Substance: INTERFERON ALFA-2B
     Dosage: 1 MICROGRAM PER KILOGRAM, QW (MAXIM 100 MICROGRAM) IS WELL TOLERATED.
     Route: 058

REACTIONS (2)
  - Left ventricular dysfunction [Unknown]
  - Toxicity to various agents [Unknown]
